FAERS Safety Report 9927508 (Version 2)
Quarter: 2014Q1

REPORT INFORMATION
  Report Type: Spontaneous
  Country: JP (occurrence: JP)
  Receive Date: 20140227
  Receipt Date: 20140306
  Transmission Date: 20141002
  Serious: Yes (Hospitalization)
  Sender: FDA-Public Use
  Company Number: JP-ROCHE-1354015

PATIENT
  Age: 83 Year
  Sex: Male
  Weight: 46 kg

DRUGS (6)
  1. TAMIFLU [Suspect]
     Indication: INFLUENZA
     Route: 048
     Dates: start: 20140215, end: 20140217
  2. DOMENAN [Concomitant]
     Indication: INFLUENZA
     Route: 048
     Dates: start: 20140215
  3. TRANSAMIN [Concomitant]
     Indication: INFLUENZA
     Route: 048
     Dates: start: 20140215
  4. MUCODYNE [Concomitant]
     Indication: INFLUENZA
     Route: 048
     Dates: start: 20140215
  5. ZITHROMAX [Concomitant]
     Indication: INFLUENZA
     Route: 048
     Dates: start: 20140215
  6. ASPIRIN [Concomitant]
     Indication: INFLUENZA
     Route: 048
     Dates: start: 20140215

REACTIONS (2)
  - Depressed level of consciousness [Recovered/Resolved]
  - Gait disturbance [Recovered/Resolved]
